FAERS Safety Report 5222214-3 (Version None)
Quarter: 2007Q1

REPORT INFORMATION
  Report Type: 
  Country: None (occurrence: None)
  Receive Date: 20070129
  Receipt Date: 20060929
  Transmission Date: 20070707
  Serious: Yes (Other)
  Sender: FDA-Public Use
  Company Number: 8016363

PATIENT
  Age: 54 Year
  Sex: Female

DRUGS (3)
  1. WELLBUTRIN [Suspect]
     Indication: DEPRESSION
     Route: 048
  2. KEPPRA [Suspect]
     Indication: MIGRAINE PROPHYLAXIS
     Dosage: 1000MG PER DAY
  3. ALPRAZOLAM [Concomitant]
     Indication: ANXIETY

REACTIONS (2)
  - ANXIETY [None]
  - SUICIDAL IDEATION [None]
